FAERS Safety Report 26122670 (Version 1)
Quarter: 2025Q4

REPORT INFORMATION
  Report Type: Spontaneous
  Country: GB (occurrence: GB)
  Receive Date: 20251204
  Receipt Date: 20251204
  Transmission Date: 20260117
  Serious: Yes (Hospitalization)
  Sender: VERTEX
  Company Number: GB-VERTEX PHARMACEUTICALS-2025-020564

PATIENT
  Sex: Female

DRUGS (4)
  1. ELEXACAFTOR\IVACAFTOR\TEZACAFTOR [Suspect]
     Active Substance: ELEXACAFTOR\IVACAFTOR\TEZACAFTOR
     Indication: Cystic fibrosis
     Dosage: ONE TABLET (75 MG IVA/ 50 MG TEZA/ 100 MG ELEXA) IN MORNING
  2. ELEXACAFTOR\IVACAFTOR\TEZACAFTOR [Suspect]
     Active Substance: ELEXACAFTOR\IVACAFTOR\TEZACAFTOR
     Dosage: REDUCED DOSE - NOT TAKING TABLETS EACH DAY
  3. KALYDECO [Suspect]
     Active Substance: IVACAFTOR
     Indication: Cystic fibrosis
     Dosage: IN EVENING
  4. KALYDECO [Suspect]
     Active Substance: IVACAFTOR
     Dosage: REDUCED DOSE - NOT TAKING TABLETS EACH DAY

REACTIONS (2)
  - Hospitalisation [Unknown]
  - Malaise [Unknown]
